FAERS Safety Report 12829079 (Version 1)
Quarter: 2016Q4

REPORT INFORMATION
  Report Type: Spontaneous
  Country: US (occurrence: US)
  Receive Date: 20161007
  Receipt Date: 20161007
  Transmission Date: 20170207
  Serious: Yes (Disabling)
  Sender: FDA-Public Use
  Company Number: US-SA-2016SA045846

PATIENT
  Age: 43 Year
  Sex: Female

DRUGS (7)
  1. TYSABRI [Concomitant]
     Active Substance: NATALIZUMAB
  2. REBIF [Concomitant]
     Active Substance: INTERFERON BETA-1A
  3. TECFIDERA [Concomitant]
     Active Substance: DIMETHYL FUMARATE
  4. BETAFERON [Concomitant]
     Active Substance: INTERFERON BETA-1B
  5. AUBAGIO [Suspect]
     Active Substance: TERIFLUNOMIDE
     Indication: RELAPSING-REMITTING MULTIPLE SCLEROSIS
     Route: 048
     Dates: start: 201511
  6. GILENYA [Concomitant]
     Active Substance: FINGOLIMOD HYDROCHLORIDE
  7. COPAXONE [Concomitant]
     Active Substance: GLATIRAMER ACETATE

REACTIONS (4)
  - Multiple sclerosis relapse [Not Recovered/Not Resolved]
  - Cognitive disorder [Not Recovered/Not Resolved]
  - Incontinence [Not Recovered/Not Resolved]
  - Nuclear magnetic resonance imaging abnormal [Not Recovered/Not Resolved]

NARRATIVE: CASE EVENT DATE: 201602
